FAERS Safety Report 8406066-6 (Version None)
Quarter: 2012Q2

REPORT INFORMATION
  Report Type: 
  Country: None (occurrence: None)
  Receive Date: 20120604
  Receipt Date: 20120525
  Transmission Date: 20120825
  Serious: Yes (Other)
  Sender: FDA-Public Use
  Company Number: US-JNJFOC-20111106367

PATIENT
  Sex: Female

DRUGS (9)
  1. LEVAQUIN [Suspect]
     Indication: INFLUENZA
     Route: 048
     Dates: start: 20070101
  2. LEVAQUIN [Suspect]
     Indication: OROPHARYNGEAL PAIN
     Route: 048
     Dates: start: 20070101
  3. LEVAQUIN [Suspect]
     Indication: BRONCHITIS
     Route: 048
     Dates: start: 20070101
  4. FLONASE [Suspect]
     Indication: PHARYNGITIS
     Route: 065
  5. FLONASE [Suspect]
     Indication: SINUSITIS
     Route: 065
  6. FLONASE [Suspect]
     Indication: OROPHARYNGEAL PAIN
     Route: 065
  7. LEVAQUIN [Suspect]
     Indication: PHARYNGITIS
     Route: 048
     Dates: start: 20070101
  8. LEVAQUIN [Suspect]
     Indication: SINUSITIS
     Route: 048
     Dates: start: 20070101
  9. CILOXAN [Suspect]
     Indication: PRODUCT USED FOR UNKNOWN INDICATION
     Route: 065

REACTIONS (3)
  - MENISCUS LESION [None]
  - PAIN [None]
  - TENDON RUPTURE [None]
